FAERS Safety Report 7744534-0 (Version None)
Quarter: 2011Q3

REPORT INFORMATION
  Report Type: 
  Country: None (occurrence: None)
  Receive Date: 20110912
  Receipt Date: 20110907
  Transmission Date: 20111222
  Serious: Yes (Hospitalization, Other)
  Sender: FDA-Public Use
  Company Number: CA-ABBOTT-11P-028-0850183-00

PATIENT
  Sex: Male

DRUGS (2)
  1. MAVIK [Suspect]
     Indication: PRODUCT USED FOR UNKNOWN INDICATION
     Route: 048
     Dates: start: 20100601, end: 20100913
  2. MAVIK [Suspect]
     Route: 048
     Dates: start: 20100914

REACTIONS (3)
  - MASS [None]
  - PAIN IN EXTREMITY [None]
  - ATRIAL FIBRILLATION [None]
